FAERS Safety Report 7610451-X (Version None)
Quarter: 2011Q3

REPORT INFORMATION
  Report Type: 
  Country: None (occurrence: None)
  Receive Date: 20110707
  Receipt Date: 20110622
  Transmission Date: 20111222
  Serious: Yes (Other)
  Sender: FDA-Public Use
  Company Number: 1000018807

PATIENT
  Age: 66 Year
  Sex: Male
  Weight: 72.3 kg

DRUGS (6)
  1. LOPERAMIDE [Concomitant]
  2. ZOPICLONE [Concomitant]
  3. METFORMIN HCL [Concomitant]
  4. CITALOPRAM HYDROBROMIDE [Suspect]
     Indication: DEPRESSION
     Dosage: 20 MG (20 MG, 1 IN 1 D), ORAL
     Route: 048
     Dates: start: 20100924, end: 20110117
  5. INSULIN GLARGINE [Concomitant]
  6. NOVOLOG [Concomitant]

REACTIONS (1)
  - SOMNAMBULISM [None]
